FAERS Safety Report 5385407-0 (Version None)
Quarter: 2007Q3

REPORT INFORMATION
  Report Type: 
  Country: None (occurrence: None)
  Receive Date: 20070709
  Receipt Date: 20070702
  Transmission Date: 20080115
  Serious: Yes (Hospitalization)
  Sender: FDA-Public Use
  Company Number: THQ2007A00458

PATIENT
  Age: 81 Year
  Sex: Female

DRUGS (7)
  1. ACTOS [Suspect]
     Indication: TYPE 2 DIABETES MELLITUS
     Dosage: 15 MG (15 MG, 1 IN 1 D), PER ORAL
     Route: 048
     Dates: start: 20020101, end: 20070529
  2. METFORMINE                        (METFORMIN HYDROCHLORIDE) [Concomitant]
  3. LIPITOR [Concomitant]
  4. AMLODIPINE [Concomitant]
  5. FRUSAMIL                    (FUROSEMIDE, AMILORIDE HYDROCHLORIDE) [Concomitant]
  6. OMEPRAZOLE [Concomitant]
  7. DIURETICS [Concomitant]

REACTIONS (2)
  - FALL [None]
  - FIBULA FRACTURE [None]
